FAERS Safety Report 21087635 (Version 2)
Quarter: 2023Q1

REPORT INFORMATION
  Report Type: Spontaneous
  Country: US (occurrence: US)
  Receive Date: 20220715
  Receipt Date: 20230118
  Transmission Date: 20230417
  Serious: No
  Sender: FDA-Public Use
  Company Number: US-NEUROCRINE BIOSCIENCES INC.-2022NBI04615

PATIENT

DRUGS (7)
  1. INGREZZA [Suspect]
     Active Substance: VALBENAZINE
     Indication: Tardive dyskinesia
     Dosage: 40 MILLIGRAM
     Route: 048
     Dates: start: 20220102, end: 20220103
  2. AUSTEDO [Concomitant]
     Active Substance: DEUTETRABENAZINE
     Indication: Schizophrenia
     Dosage: 9MG, 1 TABLET WITH FOOD, ORALLY, TWICE A DAY, 30 DAYS
  3. AUSTEDO [Concomitant]
     Active Substance: DEUTETRABENAZINE
     Dosage: 1064MG/3.9ML INTRAMUSCULAR INJECTION
     Dates: start: 20220103
  4. ARIPIPRAZOLE [Concomitant]
     Active Substance: ARIPIPRAZOLE
     Indication: Schizophrenia
     Dosage: 1 TABLET ORALLY ONCE A DAY FOR 30 DAYS.
  5. ARISTADA [Concomitant]
     Active Substance: ARIPIPRAZOLE LAUROXIL
     Indication: Schizophrenia
     Dosage: 1064MG/3.9ML PREFILLED SYRINGE 3.9ML EVERY 2 MONTHS, 60 DAYS INTRAMUSCULAR INJECTION
  6. LEXAPRO [Concomitant]
     Active Substance: ESCITALOPRAM OXALATE
     Indication: Schizophrenia
     Dosage: 1 TABLET ORALLY ONCE A DAY, 30 DAYS
  7. BUPROPION HYDROCHLORIDE [Concomitant]
     Active Substance: BUPROPION HYDROCHLORIDE
     Indication: Schizophrenia
     Dosage: 12 HOURS 150MG, 1 TABLET IN THE MORING AND 1 AT 1500, ORALLY, TWICE A DAY, 30 DAYS

REACTIONS (3)
  - Tachycardia [Recovered/Resolved]
  - Palpitations [Recovered/Resolved]
  - Blood pressure increased [Recovered/Resolved]

NARRATIVE: CASE EVENT DATE: 20220102
